FAERS Safety Report 7536287-6 (Version None)
Quarter: 2011Q2

REPORT INFORMATION
  Report Type: 
  Country: None (occurrence: None)
  Receive Date: 20110608
  Receipt Date: 20110608
  Transmission Date: 20111010
  Serious: Yes (Life-Threatening, Other)
  Sender: FDA-Public Use
  Company Number: None

PATIENT
  Age: 56 Year
  Sex: Female

DRUGS (1)
  1. XELODA [Suspect]
     Indication: BREAST CANCER
     Dosage: 2 (500 MG) 1000MG BID PO
     Route: 048

REACTIONS (3)
  - BLOOD COUNT ABNORMAL [None]
  - EPISTAXIS [None]
  - CONTUSION [None]
